FAERS Safety Report 5289477-X (Version None)
Quarter: 2007Q2

REPORT INFORMATION
  Report Type: 
  Country: None (occurrence: None)
  Receive Date: 20070406
  Receipt Date: 20070327
  Transmission Date: 20071010
  Serious: Yes (Hospitalization)
  Sender: FDA-Public Use
  Company Number: CO-PFIZER INC-2007024477

PATIENT
  Sex: Male

DRUGS (1)
  1. UNASYN [Suspect]
     Indication: SINUSITIS

REACTIONS (1)
  - CHOLESTASIS [None]
